FAERS Safety Report 13492182 (Version 14)
Quarter: 2018Q2

REPORT INFORMATION
  Report Type: Spontaneous
  Country: CA (occurrence: CA)
  Receive Date: 20170427
  Receipt Date: 20180604
  Transmission Date: 20180711
  Serious: Yes (Other)
  Sender: FDA-Public Use
  Company Number: CA-ROCHE-1901737

PATIENT
  Age: 51 Year
  Sex: Female

DRUGS (54)
  1. VENTOLIN [Suspect]
     Active Substance: ALBUTEROL SULFATE
     Indication: CHEST DISCOMFORT
     Route: 065
     Dates: start: 20160103
  2. VENTOLIN [Suspect]
     Active Substance: ALBUTEROL SULFATE
     Indication: COUGH
     Route: 065
     Dates: start: 20120819
  3. VENTOLIN [Suspect]
     Active Substance: ALBUTEROL SULFATE
     Route: 055
  4. PREDNISONE. [Suspect]
     Active Substance: PREDNISONE
     Dosage: 50 MG FOR FIVE MORE 5 DAYS AND THEN TAPERED DOSE
     Route: 065
     Dates: end: 20150115
  5. ZITHROMAX [Suspect]
     Active Substance: AZITHROMYCIN DIHYDRATE
     Indication: INFECTION
     Dosage: 250 MG, TIW (3 TIMES A WEEK, MONDAY, WEDNESDAY AND FRIDAY)
     Route: 065
     Dates: start: 20170614
  6. XOLAIR [Suspect]
     Active Substance: OMALIZUMAB
     Route: 058
     Dates: start: 20170613
  7. VENTOLIN [Suspect]
     Active Substance: ALBUTEROL SULFATE
     Indication: HYPERSENSITIVITY
     Route: 065
     Dates: start: 20131124
  8. VENTOLIN [Suspect]
     Active Substance: ALBUTEROL SULFATE
     Route: 065
  9. VENTOLIN [Suspect]
     Active Substance: ALBUTEROL SULFATE
     Route: 065
  10. PREDNISONE. [Suspect]
     Active Substance: PREDNISONE
     Indication: CHEST DISCOMFORT
     Route: 065
     Dates: start: 20140214, end: 20140218
  11. PREDNISONE. [Suspect]
     Active Substance: PREDNISONE
     Route: 065
  12. PREDNISONE. [Suspect]
     Active Substance: PREDNISONE
     Dosage: WILL BE TAPERED FOR 17 MORE DAYS
     Route: 065
     Dates: start: 20160511
  13. PREDNISONE. [Suspect]
     Active Substance: PREDNISONE
     Route: 065
     Dates: start: 20160720
  14. SPIRIVA [Concomitant]
     Active Substance: TIOTROPIUM BROMIDE MONOHYDRATE
     Indication: PRODUCT USED FOR UNKNOWN INDICATION
     Dosage: 2 DF, QD
     Route: 065
  15. ZENHALE [Concomitant]
     Active Substance: FORMOTEROL FUMARATE\MOMETASONE FUROATE
     Indication: PRODUCT USED FOR UNKNOWN INDICATION
     Route: 065
     Dates: end: 201201
  16. COMBIVENT [Concomitant]
     Active Substance: ALBUTEROL SULFATE\IPRATROPIUM BROMIDE
     Indication: PRODUCT USED FOR UNKNOWN INDICATION
     Dosage: 20 UG, UNK
     Route: 065
     Dates: start: 201507
  17. TUMS [Concomitant]
     Active Substance: CALCIUM CARBONATE
     Indication: PRODUCT USED FOR UNKNOWN INDICATION
     Dosage: 1 DF, UNK
     Route: 065
  18. XOLAIR [Suspect]
     Active Substance: OMALIZUMAB
     Route: 058
     Dates: start: 20170515
  19. XOLAIR [Suspect]
     Active Substance: OMALIZUMAB
     Route: 058
     Dates: start: 20170626
  20. PREDNISONE. [Suspect]
     Active Substance: PREDNISONE
     Indication: ASTHMA
     Route: 065
     Dates: start: 20121101, end: 20121105
  21. PREDNISONE. [Suspect]
     Active Substance: PREDNISONE
     Route: 065
     Dates: start: 201410
  22. PREDNISONE. [Suspect]
     Active Substance: PREDNISONE
     Dosage: 50 MG FOR 4 DAYS (TAPERED DOSE)
     Route: 065
     Dates: start: 20141024
  23. PREDNISONE. [Suspect]
     Active Substance: PREDNISONE
     Route: 065
     Dates: start: 20150925
  24. PREDNISONE. [Suspect]
     Active Substance: PREDNISONE
     Route: 065
  25. PREDNISONE. [Suspect]
     Active Substance: PREDNISONE
     Route: 065
     Dates: start: 201704, end: 20170424
  26. XOLAIR [Suspect]
     Active Substance: OMALIZUMAB
     Route: 058
     Dates: start: 20170208
  27. XOLAIR [Suspect]
     Active Substance: OMALIZUMAB
     Route: 058
     Dates: start: 20170419
  28. VENTOLIN [Suspect]
     Active Substance: ALBUTEROL SULFATE
     Route: 065
  29. PREDNISONE. [Suspect]
     Active Substance: PREDNISONE
     Dosage: 50 MG FOR SEVEN DAYS WITH WEANING ORDERS (10 MG EVERY 3 DAYS)
     Route: 065
     Dates: start: 20141023
  30. PREDNISONE. [Suspect]
     Active Substance: PREDNISONE
     Dosage: 50 MG FOR 5 DAYS
     Route: 065
     Dates: start: 20141203, end: 20141207
  31. XOLAIR [Suspect]
     Active Substance: OMALIZUMAB
     Indication: ASTHMA
     Route: 058
     Dates: start: 20110210
  32. XOLAIR [Suspect]
     Active Substance: OMALIZUMAB
     Route: 058
     Dates: start: 20170308
  33. PREDNISONE. [Suspect]
     Active Substance: PREDNISONE
     Route: 065
     Dates: start: 20170425
  34. PREDNISONE. [Suspect]
     Active Substance: PREDNISONE
     Route: 065
     Dates: start: 20170427
  35. ADVAIR HFA [Concomitant]
     Active Substance: FLUTICASONE PROPIONATE\SALMETEROL XINAFOATE
     Dosage: 500 OT, (1 DOSE)
     Route: 055
  36. ALVESCO [Concomitant]
     Active Substance: CICLESONIDE
     Indication: PRODUCT USED FOR UNKNOWN INDICATION
     Dosage: 2 DF, QID
     Route: 065
  37. DEXILANT [Concomitant]
     Active Substance: DEXLANSOPRAZOLE
     Indication: PRODUCT USED FOR UNKNOWN INDICATION
     Dosage: 1 DF, QD
     Route: 065
  38. XOLAIR [Suspect]
     Active Substance: OMALIZUMAB
     Route: 058
     Dates: start: 20170710
  39. VENTOLIN [Suspect]
     Active Substance: ALBUTEROL SULFATE
     Indication: DYSPNOEA
     Route: 065
     Dates: start: 20110530
  40. PREDNISONE. [Suspect]
     Active Substance: PREDNISONE
     Route: 065
     Dates: start: 20150204
  41. PREDNISONE. [Suspect]
     Active Substance: PREDNISONE
     Route: 065
     Dates: start: 20150302
  42. PREDNISONE. [Suspect]
     Active Substance: PREDNISONE
     Dosage: FOR FIVE DAYS
     Route: 065
  43. DILTIAZEM. [Suspect]
     Active Substance: DILTIAZEM
     Indication: PRODUCT USED FOR UNKNOWN INDICATION
     Dosage: 1 DF, QD
     Route: 065
  44. XOLAIR [Suspect]
     Active Substance: OMALIZUMAB
     Route: 058
  45. VENTOLIN [Suspect]
     Active Substance: ALBUTEROL SULFATE
     Indication: ASTHMA
     Route: 065
  46. PREDNISONE. [Suspect]
     Active Substance: PREDNISONE
     Indication: DYSPNOEA
     Route: 065
  47. XOLAIR [Suspect]
     Active Substance: OMALIZUMAB
     Route: 058
     Dates: start: 20170530
  48. XOLAIR [Suspect]
     Active Substance: OMALIZUMAB
     Route: 058
     Dates: start: 20170721
  49. PREDNISONE. [Suspect]
     Active Substance: PREDNISONE
     Route: 065
     Dates: start: 20160314, end: 20160318
  50. PREDNISONE. [Suspect]
     Active Substance: PREDNISONE
     Route: 065
     Dates: start: 20170214, end: 20170225
  51. ZITHROMAX [Suspect]
     Active Substance: AZITHROMYCIN DIHYDRATE
     Indication: RESPIRATORY TRACT CONGESTION
  52. ADVAIR HFA [Concomitant]
     Active Substance: FLUTICASONE PROPIONATE\SALMETEROL XINAFOATE
     Indication: PRODUCT USED FOR UNKNOWN INDICATION
     Dosage: 500 OT
     Route: 055
     Dates: start: 201201
  53. ATROVENT [Concomitant]
     Active Substance: IPRATROPIUM BROMIDE
     Indication: PRODUCT USED FOR UNKNOWN INDICATION
     Dosage: 2 DF, QID
     Route: 065
  54. NEXIUM [Concomitant]
     Active Substance: ESOMEPRAZOLE MAGNESIUM
     Route: 065

REACTIONS (14)
  - Breath odour [Unknown]
  - Insomnia [Unknown]
  - Heart rate increased [Unknown]
  - Abdominal discomfort [Unknown]
  - Crepitations [Recovered/Resolved]
  - Nasopharyngitis [Unknown]
  - Brain hypoxia [Unknown]
  - Pulmonary function test decreased [Unknown]
  - Pulmonary function test abnormal [Unknown]
  - Drug ineffective [Unknown]
  - Hypersensitivity [Unknown]
  - Lower respiratory tract congestion [Not Recovered/Not Resolved]
  - Pyrexia [Recovered/Resolved]
  - Malaise [Not Recovered/Not Resolved]

NARRATIVE: CASE EVENT DATE: 201207
